FAERS Safety Report 8472759-8 (Version None)
Quarter: 2012Q2

REPORT INFORMATION
  Report Type: 
  Country: None (occurrence: None)
  Receive Date: 20120627
  Receipt Date: 20120625
  Transmission Date: 20120825
  Serious: Yes (Other)
  Sender: FDA-Public Use
  Company Number: PHHY2012GB054193

PATIENT
  Age: 62 Year
  Sex: Female

DRUGS (2)
  1. COLOFAC [Concomitant]
     Indication: IRRITABLE BOWEL SYNDROME
     Route: 048
  2. AMLODIPINE [Suspect]
     Indication: HYPERTENSION
     Dosage: 5 MG, QD
     Route: 048
     Dates: start: 20120517, end: 20120606

REACTIONS (2)
  - SKIN BURNING SENSATION [None]
  - DIARRHOEA [None]
